FAERS Safety Report 20292560 (Version 1)
Quarter: 2022Q1

REPORT INFORMATION
  Report Type: Report from Study
  Country: US (occurrence: US)
  Receive Date: 20220104
  Receipt Date: 20220104
  Transmission Date: 20220423
  Serious: Yes (Other)
  Sender: FDA-Public Use
  Company Number: US-GILEAD-2022-0563897

PATIENT
  Age: 58 Year

DRUGS (1)
  1. ADEFOVIR DIPIVOXIL [Suspect]
     Active Substance: ADEFOVIR DIPIVOXIL
     Indication: Chronic hepatitis B
     Route: 065

REACTIONS (7)
  - Hepatic fibrosis [Unknown]
  - Drug ineffective [Unknown]
  - Post-traumatic stress disorder [Unknown]
  - Generalised anxiety disorder [Unknown]
  - Panic attack [Unknown]
  - Agoraphobia [Unknown]
  - Kyphosis [Unknown]
